FAERS Safety Report 18122788 (Version 1)
Quarter: 2020Q3

REPORT INFORMATION
  Report Type: Spontaneous
  Country: US (occurrence: US)
  Receive Date: 20200806
  Receipt Date: 20200806
  Transmission Date: 20201103
  Serious: Yes (Death)
  Sender: FDA-Public Use
  Company Number: None

PATIENT
  Age: 92 Year
  Sex: Male
  Weight: 63.5 kg

DRUGS (1)
  1. CIPROFLOXACIN. [Suspect]
     Active Substance: CIPROFLOXACIN
     Indication: EYE INFECTION
     Dosage: ?          OTHER ROUTE:EYE DROPS?
     Dates: start: 20200508, end: 20200513

REACTIONS (6)
  - Joint effusion [None]
  - Joint swelling [None]
  - Paralysis [None]
  - Hypophagia [None]
  - Heart rate abnormal [None]
  - Blister [None]

NARRATIVE: CASE EVENT DATE: 20200510
